APPROVED DRUG PRODUCT: LUCEMYRA
Active Ingredient: LOFEXIDINE HYDROCHLORIDE
Strength: EQ 0.18MG BASE
Dosage Form/Route: TABLET;ORAL
Application: N209229 | Product #001 | TE Code: AB
Applicant: BIOCORRX PHARMACEUTICALS INC
Approved: May 16, 2018 | RLD: Yes | RS: Yes | Type: RX